FAERS Safety Report 12270668 (Version 7)
Quarter: 2016Q3

REPORT INFORMATION
  Report Type: Spontaneous
  Country: US (occurrence: US)
  Receive Date: 20160415
  Receipt Date: 20160929
  Transmission Date: 20161109
  Serious: No
  Sender: FDA-Public Use
  Company Number: US-PFIZER INC-2015095843

PATIENT
  Age: 69 Year
  Sex: Female

DRUGS (28)
  1. AMOXICILLIN. [Concomitant]
     Active Substance: AMOXICILLIN
     Indication: DENTAL CARE
     Dosage: 2000 MG, 4 CAPSULES ONE HOUR BEFORE APPOINTMENT
     Route: 048
     Dates: start: 20130129
  2. AMOXICILLIN. [Concomitant]
     Active Substance: AMOXICILLIN
     Dosage: UNK
     Dates: start: 2005
  3. ASPIRIN 81 [Concomitant]
     Active Substance: ASPIRIN
     Dosage: 81 MG, 1X/DAY
     Route: 048
     Dates: start: 2007
  4. DIPHENOXYLATE/ATROPINE [Concomitant]
     Active Substance: ATROPINE\DIPHENOXYLATE
     Dosage: 1 CAPSULE (2.5-0.025 MG), 3X/DAY
     Dates: start: 20140228
  5. DIPHENOXYLATE/ATROPINE [Concomitant]
     Active Substance: ATROPINE\DIPHENOXYLATE
     Dosage: UNK, AS NEEDED
     Dates: start: 2010
  6. FOLIC ACID. [Concomitant]
     Active Substance: FOLIC ACID
     Dosage: 400 UG, DAILY
     Dates: start: 2005
  7. GABAPENTIN. [Concomitant]
     Active Substance: GABAPENTIN
     Dosage: 800 MG, (100 MG IN AM 300MG AT 4 PM AND 400MG AT NIGHT)
     Dates: start: 20121119
  8. METOPROLOL SUCCINATE. [Concomitant]
     Active Substance: METOPROLOL SUCCINATE
     Dosage: 25 MG, 1X/DAY
     Route: 048
     Dates: start: 20140512
  9. REMODULIN [Concomitant]
     Active Substance: TREPROSTINIL
     Dosage: 69 NG/KG/MIN (350 MICROLITERS/H, DOSING WEIGHT=64 KG)
     Dates: start: 2010
  10. RITUXAN [Concomitant]
     Active Substance: RITUXIMAB
     Dosage: EVERY 6 MONTH FOR 4 WEEKS
     Dates: start: 2010
  11. FERROUS SULFATE. [Concomitant]
     Active Substance: FERROUS SULFATE
     Dosage: 325 MG 1 CAPSULE DAILY AS NEEDED
     Dates: start: 2005
  12. FUROSEMIDE. [Concomitant]
     Active Substance: FUROSEMIDE
     Dosage: 200 MG, 120 MG IN THE MORNING AND 80 MG IN THE EVENING
     Route: 048
     Dates: start: 20140908
  13. GABAPENTIN. [Concomitant]
     Active Substance: GABAPENTIN
     Dosage: 300 MG, UNK
     Dates: start: 2010
  14. KLOR-CON M20 [Concomitant]
     Active Substance: POTASSIUM CHLORIDE
     Dosage: 20 MEQ TABLETS, 4X/DAY
     Route: 048
     Dates: start: 20111107
  15. FUROSEMIDE. [Concomitant]
     Active Substance: FUROSEMIDE
     Dosage: UNK
     Dates: start: 2004
  16. KLOR-CON M20 [Concomitant]
     Active Substance: POTASSIUM CHLORIDE
     Dosage: UNK
     Dates: start: 2005
  17. REVATIO [Suspect]
     Active Substance: SILDENAFIL CITRATE
     Indication: DYSPNOEA
  18. DIGOXIN. [Concomitant]
     Active Substance: DIGOXIN
     Dosage: 0.25 MG, DAILY
     Dates: start: 2005
  19. VITAMIN B-6 [Concomitant]
     Active Substance: PYRIDOXINE
     Dosage: 100 MG, 1X/DAY
     Route: 048
     Dates: start: 2005
  20. REVATIO [Suspect]
     Active Substance: SILDENAFIL CITRATE
     Indication: PULMONARY ARTERIAL HYPERTENSION
     Dosage: 20 MG, 3X/DAY
     Route: 048
     Dates: start: 2004
  21. LETAIRIS [Concomitant]
     Active Substance: AMBRISENTAN
     Dosage: 10 MG, 1X/DAY
     Route: 048
     Dates: start: 20141021
  22. LETAIRIS [Concomitant]
     Active Substance: AMBRISENTAN
     Dosage: UNK
     Dates: start: 2015
  23. LOPERAMIDE HCL [Concomitant]
     Active Substance: LOPERAMIDE HYDROCHLORIDE
     Dosage: 2 MG 1 CAPSULE DAILY ^6 TABLETS PER DAY^
     Route: 048
     Dates: start: 2010
  24. METOLAZONE. [Concomitant]
     Active Substance: METOLAZONE
     Dosage: 2.5 MG, AS NEEDED (ONCE WEEKLY)
     Route: 048
     Dates: start: 2005
  25. METOPROLOL SUCCINATE. [Concomitant]
     Active Substance: METOPROLOL SUCCINATE
     Dosage: UNK
     Dates: start: 2010
  26. NASONEX [Concomitant]
     Active Substance: MOMETASONE FUROATE
     Dosage: 1 SPRAY IN EACH NOSTRIL, 1X/DAY
     Route: 045
     Dates: start: 2010
  27. PRAVACHOL [Concomitant]
     Active Substance: PRAVASTATIN SODIUM
     Dosage: 20 MG, 1X/DAY (TAKE 1 TABLET DAILY AT BEDTIME)
     Route: 048
     Dates: start: 2010
  28. WARFARIN SODIUM. [Concomitant]
     Active Substance: WARFARIN SODIUM
     Dosage: 4 MG TABLET ORALLY 3 MG IN THE EVENING OR AS DIRECTED
     Route: 048
     Dates: start: 2005

REACTIONS (5)
  - Skin burning sensation [Unknown]
  - Skin irritation [Unknown]
  - Herpes zoster [Not Recovered/Not Resolved]
  - Restlessness [Unknown]
  - Pain of skin [Not Recovered/Not Resolved]

NARRATIVE: CASE EVENT DATE: 20160219
